FAERS Safety Report 10453155 (Version 1)
Quarter: 2014Q3

REPORT INFORMATION
  Report Type: Spontaneous
  Country: US (occurrence: None)
  Receive Date: 20140912
  Receipt Date: 20140912
  Transmission Date: 20150326
  Serious: Yes (Disabling)
  Sender: FDA-Public Use
  Company Number: None

PATIENT
  Age: 19 Year
  Sex: Male

DRUGS (2)
  1. GUANFACINE. [Suspect]
     Active Substance: GUANFACINE
     Indication: TOURETTE^S DISORDER
     Route: 048
  2. GUANFACINE. [Suspect]
     Active Substance: GUANFACINE
     Indication: OBSESSIVE-COMPULSIVE DISORDER
     Route: 048

REACTIONS (5)
  - Off label use [None]
  - Condition aggravated [None]
  - Product packaging quantity issue [None]
  - Drug dose omission [None]
  - Obsessive-compulsive disorder [None]

NARRATIVE: CASE EVENT DATE: 20140802
